FAERS Safety Report 9036338 (Version 1)
Quarter: 2013Q1

REPORT INFORMATION
  Report Type: Spontaneous
  Country: US (occurrence: None)
  Receive Date: 20130117
  Receipt Date: 20130117
  Transmission Date: 20140127
  Serious: Yes (Other)
  Sender: FDA-Public Use
  Company Number: None

PATIENT
  Age: 31 Year
  Sex: Female
  Weight: 68.04 kg

DRUGS (1)
  1. MIRENA [Suspect]
     Indication: CONTRACEPTION
     Dosage: ONE DOSE, ONCE EVERY 5 YEARS, INTRA-UTERINE
     Route: 015
     Dates: start: 20121001, end: 20130116

REACTIONS (11)
  - Device dislocation [None]
  - Abdominal pain [None]
  - Menorrhagia [None]
  - Polymenorrhoea [None]
  - Urinary tract infection [None]
  - Vaginal infection [None]
  - Back pain [None]
  - Muscle spasms [None]
  - Disorientation [None]
  - Nausea [None]
  - Vomiting [None]
